FAERS Safety Report 15783051 (Version 2)
Quarter: 2019Q1

REPORT INFORMATION
  Report Type: Spontaneous
  Country: CH (occurrence: CH)
  Receive Date: 20190102
  Receipt Date: 20190103
  Transmission Date: 20190417
  Serious: Yes (Hospitalization)
  Sender: FDA-Public Use
  Company Number: CH-PFIZER INC-2018533343

PATIENT
  Age: 66 Year
  Sex: Female
  Weight: 58 kg

DRUGS (8)
  1. ATORVASTATIN PFIZER [Suspect]
     Active Substance: ATORVASTATIN
     Indication: ISCHAEMIC CEREBRAL INFARCTION
     Dosage: 80 MG, 1X/DAY (0-0-2-0)
     Route: 048
     Dates: start: 20181106, end: 20181204
  2. ASPIRIN CARDIO [Suspect]
     Active Substance: ASPIRIN
     Dosage: 100 MG, 1X/DAY
     Route: 065
     Dates: start: 201811
  3. ASPIRIN CARDIO [Suspect]
     Active Substance: ASPIRIN
     Indication: ISCHAEMIC CEREBRAL INFARCTION
     Dosage: 300 MG, 1X/DAY (1-0-0-0)
     Route: 065
     Dates: start: 20181106, end: 201811
  4. ELTROXIN LF [Concomitant]
     Dosage: LONGTERM TREATMENT (1.5-0-0-0)
  5. MOVICOL [Concomitant]
     Active Substance: POLYETHYLENE GLYCOL 3350\POTASSIUM CHLORIDE\SODIUM BICARBONATE\SODIUM CHLORIDE
     Dosage: 1 DF, 2X/DAY (1 DF EVERY 12 HOURS, 1-0-1-0)
     Dates: start: 201811
  6. FRAGMIN [Suspect]
     Active Substance: DALTEPARIN SODIUM
     Dosage: 5000 IU, 1X/DAY (0-0-0-1)
     Route: 058
     Dates: start: 20181106
  7. TRIATEC (RAMIPRIL) [Suspect]
     Active Substance: RAMIPRIL
     Dosage: 2.5 MG, 1X/DAY (1-0-0-0)
     Route: 048
     Dates: start: 20181113, end: 20181211
  8. ACTILYSE [Concomitant]
     Active Substance: ALTEPLASE
     Indication: ISCHAEMIC CEREBRAL INFARCTION
     Dosage: 55 ML, IN TOTAL
     Route: 042
     Dates: start: 20181104, end: 20181104

REACTIONS (4)
  - Hepatitis cholestatic [Not Recovered/Not Resolved]
  - Decreased appetite [Unknown]
  - Pyrexia [Unknown]
  - Headache [Unknown]

NARRATIVE: CASE EVENT DATE: 201812
